FAERS Safety Report 5495494-7 (Version None)
Quarter: 2007Q4

REPORT INFORMATION
  Report Type: 
  Country: None (occurrence: None)
  Receive Date: 20071023
  Receipt Date: 20071010
  Transmission Date: 20080405
  Serious: Yes (Other)
  Sender: FDA-Public Use
  Company Number: 2007RL000361

PATIENT
  Age: 79 Year
  Sex: Female
  Weight: 96.1626 kg

DRUGS (9)
  1. DYNACIRC [Suspect]
     Indication: HYPERTENSION
     Dosage: 10 MG; QD; PO;  15 MG; QD; PO
     Route: 048
     Dates: start: 20070101, end: 20070101
  2. DYNACIRC [Suspect]
     Indication: HYPERTENSION
     Dosage: 10 MG; QD; PO;  15 MG; QD; PO
     Route: 048
     Dates: start: 20070701, end: 20070101
  3. DYNACIRC [Suspect]
     Indication: HYPERTENSION
     Dosage: 10 MG; QD; PO;  15 MG; QD; PO
     Route: 048
     Dates: start: 20070801
  4. METOPROLOL [Concomitant]
  5. METFORMIN HCL [Concomitant]
  6. XANAX [Concomitant]
  7. EDECRIN [Concomitant]
  8. CATAORESS-TTS [Concomitant]
  9. NEXIUM [Concomitant]

REACTIONS (21)
  - ASTHENIA [None]
  - BACK PAIN [None]
  - CATARACT [None]
  - CONFUSIONAL STATE [None]
  - DEPRESSION [None]
  - DRUG INEFFECTIVE [None]
  - GAIT DISTURBANCE [None]
  - GENERALISED OEDEMA [None]
  - HYPERHIDROSIS [None]
  - INSOMNIA [None]
  - LUNG DISORDER [None]
  - MUSCULOSKELETAL PAIN [None]
  - NEUROPATHY PERIPHERAL [None]
  - OEDEMA PERIPHERAL [None]
  - PAIN IN EXTREMITY [None]
  - PRURITUS [None]
  - SKIN DISORDER [None]
  - SKIN EXFOLIATION [None]
  - SUICIDAL IDEATION [None]
  - TONGUE DISORDER [None]
  - TONGUE DRY [None]
